FAERS Safety Report 4685005-8 (Version None)
Quarter: 2005Q2

REPORT INFORMATION
  Report Type: 
  Country: None (occurrence: None)
  Receive Date: 20050531
  Receipt Date: 20050415
  Transmission Date: 20051028
  Serious: No
  Sender: FDA-Public Use
  Company Number: WAES 504USA02751

PATIENT
  Age: 70 Year
  Sex: Female

DRUGS (4)
  1. ZETIA [Suspect]
     Indication: BLOOD CHOLESTEROL INCREASED
     Dosage: 10 MG/DAILY/PO
     Route: 048
  2. COREG [Concomitant]
  3. LIPITOR [Concomitant]
  4. SPIRONOLACTONE [Concomitant]

REACTIONS (1)
  - ALOPECIA [None]
